FAERS Safety Report 7807380-5 (Version None)
Quarter: 2011Q4

REPORT INFORMATION
  Report Type: 
  Country: None (occurrence: None)
  Receive Date: 20111011
  Receipt Date: 20110926
  Transmission Date: 20120403
  Serious: Yes (Hospitalization)
  Sender: FDA-Public Use
  Company Number: ES-ARROW GEN-2011-15804

PATIENT
  Sex: Female

DRUGS (3)
  1. PREDNISONE [Suspect]
     Indication: SYSTEMIC LUPUS ERYTHEMATOSUS
     Dosage: 1 MG/KG/ DAY
     Dates: start: 20080701
  2. MYCOPHENOLATE MEFETIL [Suspect]
     Indication: SYSTEMIC LUPUS ERYTHEMATOSUS
     Dosage: UNK
     Route: 065
     Dates: start: 20080701
  3. METHYLPREDNISOLONE [Suspect]
     Indication: SYSTEMIC LUPUS ERYTHEMATOSUS
     Dosage: UNK
     Dates: start: 20080701

REACTIONS (2)
  - CYTOMEGALOVIRUS COLITIS [None]
  - RESPIRATORY DISORDER [None]
